FAERS Safety Report 4973073-5 (Version None)
Quarter: 2006Q2

REPORT INFORMATION
  Report Type: 
  Country: None (occurrence: None)
  Receive Date: 20060414
  Receipt Date: 20060406
  Transmission Date: 20061013
  Serious: Yes (Other)
  Sender: FDA-Public Use
  Company Number: ZA-ROCHE-443755

PATIENT
  Sex: Female

DRUGS (1)
  1. ROACCUTANE [Suspect]
     Indication: DRUG USE FOR UNKNOWN INDICATION
     Dosage: THERAPY STOP DATE ESTIMATED AS 2006.
     Route: 048

REACTIONS (3)
  - DRUG EXPOSURE DURING PREGNANCY [None]
  - NO ADVERSE EFFECT [None]
  - PREGNANCY [None]
